FAERS Safety Report 20102033 (Version 1)
Quarter: 2021Q4

REPORT INFORMATION
  Report Type: Spontaneous
  Country: ES (occurrence: ES)
  Receive Date: 20211123
  Receipt Date: 20211123
  Transmission Date: 20220303
  Serious: Yes (Hospitalization)
  Sender: FDA-Public Use
  Company Number: None

PATIENT
  Age: 59 Year
  Sex: Male

DRUGS (4)
  1. NAPROXEN [Suspect]
     Active Substance: NAPROXEN
     Indication: Pain
     Dosage: 1000 MILLIGRAM DAILY; 1-0-1, NAPROXENO (2002A)
     Route: 048
     Dates: start: 20200709, end: 20200715
  2. IBUPROFEN [Suspect]
     Active Substance: IBUPROFEN
     Indication: Pain
     Dosage: 2400 MILLIGRAM DAILY; 1-1-1-1, IBUPROFENO (1769A)
     Route: 048
     Dates: start: 20200709, end: 20200715
  3. ACETAMINOPHEN [Suspect]
     Active Substance: ACETAMINOPHEN
     Dosage: 3 GRAM DAILY; 1-1-1, PARACETAMOL (12A)
     Route: 048
     Dates: start: 20200709, end: 20200715
  4. METAMIZOL [Concomitant]
     Active Substance: METAMIZOLE SODIUM
     Indication: Pain
     Dosage: 1-1-1, METAMIZOL (111A), 575 MG
     Route: 048
     Dates: start: 20200709, end: 20200715

REACTIONS (2)
  - Deafness neurosensory [Recovering/Resolving]
  - Vestibular disorder [Not Recovered/Not Resolved]

NARRATIVE: CASE EVENT DATE: 20200813
